FAERS Safety Report 17370053 (Version 1)
Quarter: 2020Q1

REPORT INFORMATION
  Report Type: Spontaneous
  Country: GB (occurrence: GB)
  Receive Date: 20200205
  Receipt Date: 20200205
  Transmission Date: 20200409
  Serious: Yes (Hospitalization, Disabling)
  Sender: FDA-Public Use
  Company Number: GB-TEVA-2020-GB-1181585

PATIENT
  Age: 17 Year
  Sex: Female
  Weight: 54.88 kg

DRUGS (7)
  1. LORAZEPAM. [Suspect]
     Active Substance: LORAZEPAM
     Indication: PANIC ATTACK
     Dosage: 2 MG
     Route: 048
     Dates: start: 20191226, end: 20191227
  2. DESOGESTREL [Concomitant]
     Active Substance: DESOGESTREL
  3. NAPROXEN. [Concomitant]
     Active Substance: NAPROXEN
  4. OMEPRAZOLE. [Concomitant]
     Active Substance: OMEPRAZOLE
  5. BECLOMETASONE DIPROPIONATE [Concomitant]
     Active Substance: BECLOMETHASONE DIPROPIONATE
  6. FORMOTEROL FUMARATE [Concomitant]
     Active Substance: FORMOTEROL FUMARATE
  7. SALBUTAMOL SULFATE [Concomitant]
     Active Substance: ALBUTEROL SULFATE

REACTIONS (11)
  - Delusion [Recovered/Resolved]
  - Psychotic disorder [Recovered/Resolved with Sequelae]
  - Aphasia [Not Recovered/Not Resolved]
  - Anxiety [Unknown]
  - Speech disorder [Not Recovered/Not Resolved]
  - Aphasia [Unknown]
  - Amnesia [Unknown]
  - Cognitive disorder [Not Recovered/Not Resolved]
  - Suicidal behaviour [Unknown]
  - Hallucination [Recovering/Resolving]
  - Depression [Unknown]

NARRATIVE: CASE EVENT DATE: 20191227
